FAERS Safety Report 13040949 (Version 1)
Quarter: 2016Q4

REPORT INFORMATION
  Report Type: Spontaneous
  Country: US (occurrence: US)
  Receive Date: 20161219
  Receipt Date: 20161219
  Transmission Date: 20170207
  Serious: Yes (Other)
  Sender: FDA-Public Use
  Company Number: US-ROCHE-1056252

PATIENT
  Age: 86 Year
  Sex: Female
  Weight: 65.6 kg

DRUGS (7)
  1. VICODIN [Concomitant]
     Active Substance: ACETAMINOPHEN\HYDROCODONE BITARTRATE
  2. ZELBORAF [Suspect]
     Active Substance: VEMURAFENIB
     Dosage: 4 TABLETS A DAY
     Route: 065
  3. NEXIUM [Concomitant]
     Active Substance: ESOMEPRAZOLE MAGNESIUM
  4. ZELBORAF [Suspect]
     Active Substance: VEMURAFENIB
     Indication: MALIGNANT MELANOMA
     Route: 048
     Dates: start: 20120319, end: 20120401
  5. ZELBORAF [Suspect]
     Active Substance: VEMURAFENIB
     Dosage: 8 TABLETS A DAY
     Route: 065
  6. CELEXA [Concomitant]
     Active Substance: CITALOPRAM HYDROBROMIDE
  7. BENICAR HCT [Concomitant]
     Active Substance: HYDROCHLOROTHIAZIDE\OLMESARTAN MEDOXOMIL

REACTIONS (5)
  - Blister [Unknown]
  - Skin papilloma [Unknown]
  - Joint swelling [Unknown]
  - Rash [Recovered/Resolved]
  - Peripheral swelling [Unknown]

NARRATIVE: CASE EVENT DATE: 20120325
